FAERS Safety Report 4543193-8 (Version None)
Quarter: 2004Q4

REPORT INFORMATION
  Report Type: 
  Country: None (occurrence: None)
  Receive Date: 20041230
  Receipt Date: 20041230
  Transmission Date: 20050328
  Serious: Yes (Life-Threatening)
  Sender: FDA-Public Use
  Company Number: None

PATIENT
  Age: 59 Year
  Sex: Male
  Weight: 111.5849 kg

DRUGS (1)
  1. LISINOPRIL [Suspect]
     Dosage: 2.5MG  QDAY  ORAL
     Route: 048

REACTIONS (1)
  - ANGIONEUROTIC OEDEMA [None]
